FAERS Safety Report 20458184 (Version 4)
Quarter: 2023Q1

REPORT INFORMATION
  Report Type: Spontaneous
  Country: DK (occurrence: GB)
  Receive Date: 20220211
  Receipt Date: 20230227
  Transmission Date: 20230417
  Serious: Yes (Death, Life-Threatening, Hospitalization, Disabling, Other)
  Sender: FDA-Public Use
  Company Number: None

PATIENT

DRUGS (38)
  1. ALBUTEROL [Suspect]
     Active Substance: ALBUTEROL
     Indication: Product used for unknown indication
     Dosage: UNK
     Route: 065
  2. PENICILLIN V [Suspect]
     Active Substance: PENICILLIN V
     Indication: Antibiotic therapy
     Dosage: UNK
     Route: 065
  3. DEXTROSE [Suspect]
     Active Substance: DEXTROSE
     Indication: Pneumonia
     Dosage: UNK (DARROW LIQ GLUCOSE)
     Route: 065
  4. CLAVULANATE POTASSIUM [Suspect]
     Active Substance: CLAVULANATE POTASSIUM
     Indication: Product used for unknown indication
     Dosage: UNK
     Route: 065
  5. PROPOFOL [Suspect]
     Active Substance: PROPOFOL
     Indication: Product used for unknown indication
     Dosage: UNK
     Route: 065
  6. M-M-RVAXPRO [Suspect]
     Active Substance: MEASLES VIRUS STRAIN ENDERS^ ATTENUATED EDMONSTON LIVE ANTIGEN\MUMPS VIRUS STRAIN B LEVEL JERYL LYNN
     Indication: Pneumococcal sepsis
     Dosage: UNK (MFR VACCINATION)
     Route: 065
  7. TRISODIUM CITRATE DIHYDRATE [Suspect]
     Active Substance: TRISODIUM CITRATE DIHYDRATE
     Indication: Pneumonia
     Dosage: UNK (DARROW LIQ GLUCOSE)
     Route: 065
  8. PIPERACILLIN AND TAZOBACTAM [Suspect]
     Active Substance: PIPERACILLIN SODIUM\TAZOBACTAM SODIUM
     Indication: Vomiting
     Dosage: UNK
     Route: 065
  9. PIPERACILLIN AND TAZOBACTAM [Suspect]
     Active Substance: PIPERACILLIN SODIUM\TAZOBACTAM SODIUM
     Indication: Respiratory arrest
  10. PENICILLIN G [Suspect]
     Active Substance: PENICILLIN G
     Indication: Mumps immunisation
     Dosage: UNK
     Route: 065
  11. GENTAMICIN [Suspect]
     Active Substance: GENTAMICIN
     Indication: Pneumococcal sepsis
     Dosage: UNK
     Route: 042
  12. GENTAMICIN [Suspect]
     Active Substance: GENTAMICIN
     Indication: Rubella immunisation
  13. GENTAMICIN [Suspect]
     Active Substance: GENTAMICIN
     Indication: Antibiotic therapy
  14. GENTAMICIN [Suspect]
     Active Substance: GENTAMICIN
     Indication: Mumps immunisation
  15. GENTAMICIN [Suspect]
     Active Substance: GENTAMICIN
     Indication: Measles immunisation
  16. POTASSIUM CHLORIDE [Suspect]
     Active Substance: POTASSIUM CHLORIDE
     Indication: Pneumonia
     Dosage: UNK
     Route: 065
  17. DORNASE ALFA [Suspect]
     Active Substance: DORNASE ALFA
     Indication: Interstitial lung disease
     Dosage: UNK
     Route: 065
  18. DORNASE ALFA [Suspect]
     Active Substance: DORNASE ALFA
     Indication: Interstitial lung disease
     Dosage: UNK
     Route: 065
  19. AMOXICILLIN\CLAVULANATE POTASSIUM [Suspect]
     Active Substance: AMOXICILLIN\CLAVULANATE POTASSIUM
     Indication: Pneumonia
     Dosage: UNK
     Route: 065
     Dates: start: 20150611, end: 20160720
  20. AMOXICILLIN\CLAVULANATE POTASSIUM [Suspect]
     Active Substance: AMOXICILLIN\CLAVULANATE POTASSIUM
     Indication: Product used for unknown indication
     Dosage: UNK
     Route: 065
     Dates: start: 20160714, end: 20160720
  21. PULMOZYME [Suspect]
     Active Substance: DORNASE ALFA
     Indication: Interstitial lung disease
     Dosage: UNK
     Route: 065
  22. VENTOLIN [Suspect]
     Active Substance: ALBUTEROL SULFATE
     Indication: Product used for unknown indication
     Dosage: UNK
     Route: 065
  23. VENTOLIN [Suspect]
     Active Substance: ALBUTEROL SULFATE
     Dosage: UNK
     Route: 065
  24. CIPROFLOXACIN [Suspect]
     Active Substance: CIPROFLOXACIN
     Indication: Product used for unknown indication
     Dosage: UNK
     Route: 065
  25. CEFUROXIME SODIUM [Suspect]
     Active Substance: CEFUROXIME SODIUM
     Indication: Antibiotic therapy
     Dosage: UNK
     Route: 042
  26. SODIUM CHLORIDE [Suspect]
     Active Substance: SODIUM CHLORIDE
     Indication: Pneumonia
     Dosage: UNK
     Route: 065
  27. MEROPENEM [Suspect]
     Active Substance: MEROPENEM
     Indication: Antibiotic therapy
     Dosage: UNK
     Route: 065
  28. FENTANYL [Suspect]
     Active Substance: FENTANYL
     Indication: Pneumonia aspiration
     Dosage: UNK
     Route: 065
  29. FENTANYL [Suspect]
     Active Substance: FENTANYL
     Indication: Pneumonia
  30. FENTANYL [Suspect]
     Active Substance: FENTANYL
     Indication: Pneumococcal infection
  31. FENTANYL [Suspect]
     Active Substance: FENTANYL
     Indication: Intestinal ischaemia
  32. FENTANYL [Suspect]
     Active Substance: FENTANYL
     Indication: Brain injury
  33. FENTANYL [Suspect]
     Active Substance: FENTANYL
     Indication: Circulatory collapse
  34. FENTANYL [Suspect]
     Active Substance: FENTANYL
     Indication: Respiratory tract infection
  35. FENTANYL [Suspect]
     Active Substance: FENTANYL
     Indication: Cerebral ischaemia
  36. FENTANYL [Suspect]
     Active Substance: FENTANYL
     Indication: Interstitial lung disease
  37. MUMPS VACCINE [Suspect]
     Active Substance: MUMPS VIRUS STRAIN B LEVEL JERYL LYNN LIVE ANTIGEN
     Indication: Product used for unknown indication
     Dosage: UNK
     Route: 065
  38. RUBELLA VIRUS VACCINE LIVE NOS [Suspect]
     Active Substance: RUBELLA VIRUS STRAIN WISTAR RA 27/3 LIVE ANTIGEN
     Indication: Pneumococcal sepsis
     Dosage: UNK
     Route: 065

REACTIONS (47)
  - Cerebral ischaemia [Fatal]
  - Circulatory collapse [Fatal]
  - Interstitial lung disease [Fatal]
  - Malaise [Fatal]
  - Chest X-ray abnormal [Fatal]
  - Motor dysfunction [Fatal]
  - Condition aggravated [Fatal]
  - Dyspnoea [Fatal]
  - Injury [Fatal]
  - Sputum increased [Fatal]
  - Disease complication [Fatal]
  - Muscular weakness [Fatal]
  - Pneumonia [Fatal]
  - Dysphagia [Fatal]
  - Brain injury [Fatal]
  - Increased bronchial secretion [Fatal]
  - Pyrexia [Fatal]
  - Respiratory tract infection bacterial [Fatal]
  - Pneumonia aspiration [Fatal]
  - Inflammation [Fatal]
  - Dehydration [Fatal]
  - Spinal muscular atrophy [Fatal]
  - Tachypnoea [Fatal]
  - Lung consolidation [Fatal]
  - Vomiting [Fatal]
  - Respiratory arrest [Fatal]
  - Atelectasis [Fatal]
  - Metabolic disorder [Fatal]
  - Diarrhoea [Fatal]
  - Intestinal ischaemia [Fatal]
  - Ischaemic cerebral infarction [Fatal]
  - Positive airway pressure therapy [Fatal]
  - Lower respiratory tract infection bacterial [Fatal]
  - Endotracheal intubation [Fatal]
  - Secretion discharge [Fatal]
  - Mechanical ventilation [Fatal]
  - Resuscitation [Fatal]
  - Scoliosis [Fatal]
  - Ascites [Fatal]
  - Stoma closure [Fatal]
  - Demyelination [Fatal]
  - Motor neurone disease [Fatal]
  - Muscle atrophy [Fatal]
  - Bronchial disorder [Fatal]
  - Lung infiltration [Fatal]
  - Lymphadenectomy [Fatal]
  - Pneumococcal sepsis [Fatal]

NARRATIVE: CASE EVENT DATE: 20160620
